FAERS Safety Report 7878440-8 (Version None)
Quarter: 2011Q4

REPORT INFORMATION
  Report Type: 
  Country: None (occurrence: None)
  Receive Date: 20111028
  Receipt Date: 20111019
  Transmission Date: 20120403
  Serious: Yes (Hospitalization, Other)
  Sender: FDA-Public Use
  Company Number: GER/UKI/09/0002318

PATIENT
  Age: 10 Week
  Sex: Male

DRUGS (2)
  1. OMEPRAZOLE [Suspect]
     Indication: GASTROOESOPHAGEAL REFLUX DISEASE
     Dosage: 0.7 MG/KG, 1 IN 1 D
  2. CISAPRIDE (CISAPRIDE) [Concomitant]

REACTIONS (7)
  - SCREAMING [None]
  - VOMITING [None]
  - ELECTROLYTE IMBALANCE [None]
  - BLOOD BICARBONATE ABNORMAL [None]
  - SYMPTOM MASKED [None]
  - FEEDING DISORDER OF INFANCY OR EARLY CHILDHOOD [None]
  - PYLORIC STENOSIS [None]
